FAERS Safety Report 4521322-X (Version None)
Quarter: 2004Q4

REPORT INFORMATION
  Report Type: 
  Country: None (occurrence: None)
  Receive Date: 20041208
  Receipt Date: 20041119
  Transmission Date: 20050328
  Serious: Yes (Other)
  Sender: FDA-Public Use
  Company Number: PHBS2004JP15797

PATIENT
  Age: 34 Year
  Sex: Female

DRUGS (2)
  1. METHERGINE [Suspect]
     Indication: ABORTION SPONTANEOUS
     Dosage: 375 UG/DAY
     Route: 048
     Dates: start: 20041022, end: 20041025
  2. METHERGINE [Suspect]
     Dosage: 375 UG, ONCE/SINGLE
     Route: 048
     Dates: start: 20041113, end: 20041113

REACTIONS (3)
  - ABDOMINAL PAIN [None]
  - DYSPNOEA [None]
  - VOMITING [None]
